FAERS Safety Report 12239452 (Version 1)
Quarter: 2016Q2

REPORT INFORMATION
  Report Type: Spontaneous
  Country: PL (occurrence: PL)
  Receive Date: 20160405
  Receipt Date: 20160405
  Transmission Date: 20160815
  Serious: Yes (Other)
  Sender: FDA-Public Use
  Company Number: PL-EDGEMONT-2016EDG00014

PATIENT
  Age: 45 Year
  Sex: Female

DRUGS (1)
  1. SERONIL (FLUOXETINE) 20 MG [Suspect]
     Active Substance: FLUOXETINE HYDROCHLORIDE
     Dosage: AFTER A SINGLE DOSE IN THE MORNING
     Route: 048
     Dates: start: 2016

REACTIONS (7)
  - Depressed level of consciousness [Recovering/Resolving]
  - Leukopenia [Recovering/Resolving]
  - Asthenia [Recovering/Resolving]
  - Dyspnoea exertional [Recovering/Resolving]
  - Neutropenia [Recovering/Resolving]
  - Feeling abnormal [Recovering/Resolving]
  - Anaemia [Recovering/Resolving]

NARRATIVE: CASE EVENT DATE: 201603
